FAERS Safety Report 9280164 (Version 1)
Quarter: 2013Q2

REPORT INFORMATION
  Report Type: Spontaneous
  Country: US (occurrence: None)
  Receive Date: 20130507
  Receipt Date: 20130507
  Transmission Date: 20140414
  Serious: No
  Sender: FDA-Public Use
  Company Number: None

PATIENT
  Age: 70 Year
  Sex: Male
  Weight: 56 kg

DRUGS (1)
  1. FERAHEME [Suspect]
     Indication: ANAEMIA
     Route: 041
     Dates: start: 20130121

REACTIONS (2)
  - Back pain [None]
  - Flushing [None]
